FAERS Safety Report 23440197 (Version 1)
Quarter: 2024Q1

REPORT INFORMATION
  Report Type: Spontaneous
  Country: US (occurrence: US)
  Receive Date: 20240124
  Receipt Date: 20240124
  Transmission Date: 20240409
  Serious: No
  Sender: FDA-Public Use
  Company Number: US-AMGEN INC-24-0017884-SR-01

PATIENT
  Age: 77 Year
  Sex: Male

DRUGS (1)
  1. AMJEVITA [Suspect]
     Active Substance: ADALIMUMAB-ATTO
     Indication: Product used for unknown indication
     Dosage: 40 MILLIGRAM/0.8 ML
     Route: 065

REACTIONS (6)
  - Device difficult to use [Unknown]
  - Product storage error [Unknown]
  - Product administration error [Unknown]
  - Wrong technique in product usage process [Unknown]
  - Drug dose omission by device [Unknown]
  - Device use error [Unknown]

NARRATIVE: CASE EVENT DATE: 20240117
